FAERS Safety Report 8292741 (Version 2)
Quarter: 2013Q2

REPORT INFORMATION
  Report Type: Report from Study
  Country: MX (occurrence: MX)
  Receive Date: 20111215
  Receipt Date: 20130627
  Transmission Date: 20140414
  Serious: Yes (Other)
  Sender: FDA-Public Use
  Company Number: PHHY2011MX107529

PATIENT
  Age: 92 Year
  Sex: Male

DRUGS (4)
  1. ONBREZ [Suspect]
     Indication: CHRONIC OBSTRUCTIVE PULMONARY DISEASE
     Dosage: 150 UG, UNK
     Dates: start: 20111124
  2. GLIBENCLAMIDE [Concomitant]
     Dosage: 3 TABLETS PER DAY
  3. CAPTOPRIL [Concomitant]
     Dosage: 1 TABLET PER DAY
  4. NITROGLYCERIN [Concomitant]
     Dosage: 1 PATCH PER DAY

REACTIONS (4)
  - Throat tightness [Not Recovered/Not Resolved]
  - Dyspnoea [Not Recovered/Not Resolved]
  - Aphagia [Not Recovered/Not Resolved]
  - Aphonia [Not Recovered/Not Resolved]
